FAERS Safety Report 8469520-7 (Version None)
Quarter: 2012Q2

REPORT INFORMATION
  Report Type: 
  Country: None (occurrence: None)
  Receive Date: 20120626
  Receipt Date: 20120531
  Transmission Date: 20120825
  Serious: Yes (Hospitalization, Other)
  Sender: FDA-Public Use
  Company Number: PHEH2012US011768

PATIENT
  Sex: Female

DRUGS (7)
  1. GABAPENTIN [Concomitant]
  2. PROVIGIL [Concomitant]
  3. SOLU-MEDROL [Concomitant]
     Dosage: UNK UKN, UNK
  4. PREVACID [Concomitant]
  5. GILENYA [Suspect]
     Indication: MULTIPLE SCLEROSIS
     Dosage: UNK UKN, UNK
     Route: 048
  6. ZANAFLEX [Concomitant]
  7. ZOFRAN [Concomitant]

REACTIONS (5)
  - MULTIPLE SCLEROSIS RELAPSE [None]
  - INFECTION [None]
  - IMPAIRED GASTRIC EMPTYING [None]
  - PANCREATITIS [None]
  - NAUSEA [None]
